FAERS Safety Report 12380643 (Version 3)
Quarter: 2016Q3

REPORT INFORMATION
  Report Type: Report from Study
  Country: GB (occurrence: GB)
  Receive Date: 20160518
  Receipt Date: 20160924
  Transmission Date: 20161109
  Serious: Yes (Death, Other)
  Sender: FDA-Public Use
  Company Number: GB-AMGEN-GBRSL2016061593

PATIENT
  Age: 67 Year
  Sex: Female
  Weight: 48 kg

DRUGS (3)
  1. PROLIA [Suspect]
     Active Substance: DENOSUMAB
     Indication: OSTEOPOROSIS
     Dosage: UNK
     Route: 065
  2. CHAMPIX [Concomitant]
     Active Substance: VARENICLINE TARTRATE
  3. MORPHINE SULPHATE [Concomitant]
     Active Substance: MORPHINE SULFATE
     Dosage: 10 MG/5ML, Q4H
     Route: 048

REACTIONS (4)
  - Lung neoplasm malignant [Fatal]
  - Pneumothorax [Unknown]
  - Vulvovaginal candidiasis [Recovered/Resolved]
  - Cough [Recovered/Resolved]

NARRATIVE: CASE EVENT DATE: 20141219
